FAERS Safety Report 14187831 (Version 1)
Quarter: 2017Q4

REPORT INFORMATION
  Report Type: Spontaneous
  Country: JP (occurrence: JP)
  Receive Date: 20171114
  Receipt Date: 20171114
  Transmission Date: 20180321
  Serious: Yes (Other)
  Sender: FDA-Public Use
  Company Number: JP-JNJFOC-20170415081

PATIENT

DRUGS (1)
  1. SIMPONI [Suspect]
     Active Substance: GOLIMUMAB
     Indication: RHEUMATOID ARTHRITIS
     Route: 058

REACTIONS (9)
  - Drug ineffective [Unknown]
  - Renal disorder [Unknown]
  - Lung disorder [Unknown]
  - Neoplasm malignant [Unknown]
  - Adverse drug reaction [Unknown]
  - Skin reaction [Unknown]
  - Cardiovascular disorder [Unknown]
  - Infection [Unknown]
  - Blood disorder [Unknown]
